FAERS Safety Report 9252014 (Version 1)
Quarter: 2013Q2

REPORT INFORMATION
  Report Type: Spontaneous
  Country: IT (occurrence: IT)
  Receive Date: 20130424
  Receipt Date: 20130424
  Transmission Date: 20140414
  Serious: Yes (Hospitalization)
  Sender: FDA-Public Use
  Company Number: IT-SANOFI-AVENTIS-2013SA039669

PATIENT
  Age: 72 Year
  Sex: Male

DRUGS (2)
  1. JEVTANA [Suspect]
     Indication: PROSTATE CANCER METASTATIC
     Route: 040
     Dates: start: 20130305, end: 20130305
  2. ZARZIO [Concomitant]
     Dates: start: 20130307, end: 20130318

REACTIONS (3)
  - Polyneuropathy [Recovered/Resolved]
  - Gastrointestinal obstruction [Recovered/Resolved]
  - Febrile neutropenia [Recovered/Resolved]
